FAERS Safety Report 9101561 (Version 4)
Quarter: 2014Q1

REPORT INFORMATION
  Report Type: Report from Study
  Country: US (occurrence: US)
  Receive Date: 20130218
  Receipt Date: 20140108
  Transmission Date: 20141002
  Serious: Yes (Congenital Anomaly, Other)
  Sender: FDA-Public Use
  Company Number: US-GILEAD-2013-0069987

PATIENT
  Sex: Male
  Weight: 1.89 kg

DRUGS (6)
  1. EMTRICITABINE/TENOFOVIR DISOPROXIL FUMARATE [Suspect]
     Indication: HIV INFECTION
     Dosage: 1 DF, QD
     Route: 064
     Dates: end: 20130718
  2. RITONAVIR [Suspect]
     Indication: HIV INFECTION
     Dosage: 100 MG, QD
     Route: 064
     Dates: end: 20130718
  3. REYATAZ [Suspect]
     Indication: HIV INFECTION
     Dosage: 300 MG, QD
     Route: 064
     Dates: end: 20130718
  4. ZIDOVUDINE [Suspect]
     Indication: HIV INFECTION
     Dosage: 1 DF, QD
     Route: 064
     Dates: start: 20130718, end: 20130718
  5. ZIDOVUDINE [Suspect]
     Dosage: 2 DF, QD
     Route: 064
     Dates: start: 20130718, end: 20130718
  6. LEVOTHROID [Concomitant]
     Dosage: UNK
     Route: 064
     Dates: start: 20121003, end: 20130718

REACTIONS (21)
  - Trisomy 18 [Unknown]
  - Congenital choroid plexus cyst [Unknown]
  - Limb deformity [Unknown]
  - Limb malformation [Unknown]
  - Adactyly [Unknown]
  - Cleft lip [Unknown]
  - Cleft palate [Unknown]
  - Anal atresia [Unknown]
  - Syndactyly [Unknown]
  - Syndactyly [Unknown]
  - Ventricular septal defect [Unknown]
  - Patent ductus arteriosus [Unknown]
  - Atrial septal defect [Unknown]
  - Ear malformation [Unknown]
  - Mitral valve disease [Unknown]
  - Tricuspid valve disease [Unknown]
  - Aortic valve disease [Unknown]
  - Aortic valve incompetence [Unknown]
  - Aortic stenosis [Unknown]
  - Anomalous pulmonary venous connection [Unknown]
  - Cardiac ventricular disorder [Unknown]
